FAERS Safety Report 15890565 (Version 1)
Quarter: 2019Q1

REPORT INFORMATION
  Report Type: Spontaneous
  Country: BR (occurrence: BR)
  Receive Date: 20190130
  Receipt Date: 20190130
  Transmission Date: 20190417
  Serious: Yes (Other)
  Sender: FDA-Public Use
  Company Number: BR-ZO SKIN HEALTH-2019ZOS00001

PATIENT
  Age: 32 Year
  Sex: Male

DRUGS (4)
  1. DAUNORUBICIN [Concomitant]
     Active Substance: DAUNORUBICIN
     Indication: CHEMOTHERAPY
     Route: 065
  2. TRETINOIN. [Suspect]
     Active Substance: TRETINOIN
     Indication: ACUTE PROMYELOCYTIC LEUKAEMIA
     Dosage: 40 MG, 2X/DAY
     Route: 048
  3. CYTARABINE. [Concomitant]
     Active Substance: CYTARABINE
     Indication: CHEMOTHERAPY
     Route: 065
  4. TRETINOIN. [Suspect]
     Active Substance: TRETINOIN
     Dosage: 40 MG, 2X/DAY
     Route: 048

REACTIONS (1)
  - Differentiation syndrome [Recovering/Resolving]
